FAERS Safety Report 14106592 (Version 1)
Quarter: 2017Q4

REPORT INFORMATION
  Report Type: Spontaneous
  Country: CA (occurrence: CA)
  Receive Date: 20171019
  Receipt Date: 20171019
  Transmission Date: 20180321
  Serious: Yes (Other)
  Sender: FDA-Public Use
  Company Number: CA-ASTRAZENECA-2017SF06605

PATIENT
  Age: 60 Year
  Sex: Female

DRUGS (1)
  1. TUDORZA PRESSAIR [Suspect]
     Active Substance: ACLIDINIUM BROMIDE
     Dosage: 400 MCG, ONE PUFF DAILY
     Route: 055

REACTIONS (9)
  - Extra dose administered [Unknown]
  - Device issue [Unknown]
  - Palpitations [Unknown]
  - Respiratory failure [Not Recovered/Not Resolved]
  - Nervousness [Unknown]
  - Drug dose omission [Unknown]
  - Tremor [Unknown]
  - Underdose [Unknown]
  - Obliterative bronchiolitis [Not Recovered/Not Resolved]
